FAERS Safety Report 16767563 (Version 1)
Quarter: 2019Q3

REPORT INFORMATION
  Report Type: Spontaneous
  Country: TR (occurrence: TR)
  Receive Date: 20190903
  Receipt Date: 20190903
  Transmission Date: 20191005
  Serious: Yes (Hospitalization)
  Sender: FDA-Public Use
  Company Number: PHHY2019TR202958

PATIENT
  Age: 28 Year
  Sex: Female

DRUGS (2)
  1. CLOMIPHENE CITRATE. [Suspect]
     Active Substance: CLOMIPHENE CITRATE
     Indication: PRODUCT USED FOR UNKNOWN INDICATION
     Dosage: 50 MG, QD FOR THE LAST 3 YEARS ON THE 3-7 DAYS OF HER MESNTRUAL PERIOD
     Route: 065
  2. MEDROXYPROGESTERONE [Suspect]
     Active Substance: MEDROXYPROGESTERONE
     Indication: PRODUCT USED FOR UNKNOWN INDICATION
     Dosage: 5 MG, QD (FOR 3-5 DAYS WAS ALSO GIVEN TO THE PATIENT FOR 2-3 TIMES PER YEAR
     Route: 048

REACTIONS (6)
  - Angiolymphoid hyperplasia with eosinophilia [Unknown]
  - Pruritus [Unknown]
  - Skin plaque [Unknown]
  - Papule [Unknown]
  - Haemorrhage subepidermal [Unknown]
  - Nodule [Unknown]
